FAERS Safety Report 8949761 (Version 1)
Quarter: 2012Q4

REPORT INFORMATION
  Report Type: 
  Country: US (occurrence: US)
  Receive Date: 20121206
  Receipt Date: 20121206
  Transmission Date: 20130627
  Serious: Yes (Other)
  Sender: FDA-Public Use
  Company Number: US-ASTELLAS-2012US011700

PATIENT
  Sex: Female
  Weight: 45 kg

DRUGS (4)
  1. PROGRAF [Suspect]
     Indication: LIVER TRANSPLANT
     Dosage: 1 mg, bid
     Route: 048
     Dates: start: 20060912
  2. FUROSEMIDE [Concomitant]
     Indication: PRODUCT USED FOR UNKNOWN INDICATION
     Dosage: 40 mg, UID/QD
     Route: 048
  3. METOPROLOL [Concomitant]
     Indication: BLOOD PRESSURE
     Dosage: 25 mg, bid
     Route: 048
  4. ISOSORBIDE MONONITRATE [Concomitant]
     Dosage: 30 mg, UID/QD
     Route: 048

REACTIONS (4)
  - Dialysis [Unknown]
  - Cerebrovascular accident [Unknown]
  - Lung neoplasm malignant [Unknown]
  - Myocardial infarction [Unknown]
